FAERS Safety Report 9106210 (Version 2)
Quarter: 2013Q2

REPORT INFORMATION
  Report Type: Report from Study
  Country: US (occurrence: US)
  Receive Date: 20130221
  Receipt Date: 20130402
  Transmission Date: 20140414
  Serious: Yes (Other)
  Sender: FDA-Public Use
  Company Number: US-009507513-1302USA007741

PATIENT
  Sex: 0

DRUGS (2)
  1. TEMODAR [Suspect]
     Dosage: 200 MG/M2, DAYS 1 THROUGH 5 EVERY 28 DAYS
     Route: 048
  2. BEVACIZUMAB [Suspect]
     Indication: METASTATIC MALIGNANT MELANOMA
     Dosage: 10 MG/KG, DAYS 1 AND 15 EVERY 28 DAYS
     Route: 042

REACTIONS (1)
  - Pulmonary embolism [Unknown]
